FAERS Safety Report 8587824-4 (Version None)
Quarter: 2012Q3

REPORT INFORMATION
  Report Type: 
  Country: None (occurrence: None)
  Receive Date: 20120813
  Receipt Date: 20120802
  Transmission Date: 20120928
  Serious: No
  Sender: FDA-Public Use
  Company Number: US-BIOGENIDEC-2011BI048865

PATIENT
  Age: 51 Year
  Sex: Female

DRUGS (4)
  1. COPAXONE [Concomitant]
     Indication: MULTIPLE SCLEROSIS
     Dates: start: 20080101
  2. AVONEX [Concomitant]
     Indication: MULTIPLE SCLEROSIS
     Route: 030
     Dates: start: 20060604
  3. TYSABRI [Suspect]
     Indication: MULTIPLE SCLEROSIS
     Route: 042
     Dates: start: 20110331
  4. TYLENOL [Concomitant]
     Indication: PREMEDICATION
     Dates: start: 20080101

REACTIONS (4)
  - BURNING SENSATION [None]
  - ERYTHEMA [None]
  - URTICARIA [None]
  - ARTHROPOD STING [None]
